FAERS Safety Report 8258485-9 (Version None)
Quarter: 2012Q2

REPORT INFORMATION
  Report Type: 
  Country: None (occurrence: None)
  Receive Date: 20120404
  Receipt Date: 20120327
  Transmission Date: 20120825
  Serious: Yes (Other)
  Sender: FDA-Public Use
  Company Number: US-BAYER-2012-030164

PATIENT
  Age: 36 Year
  Sex: Female

DRUGS (1)
  1. MIRENA [Suspect]
     Indication: CONTRACEPTION
     Dosage: 20 MCG/24HR, CONT
     Route: 015
     Dates: start: 20110419, end: 20120320

REACTIONS (6)
  - GENITAL HAEMORRHAGE [None]
  - DEVICE EXPULSION [None]
  - BACK PAIN [None]
  - PAIN [None]
  - OLIGOMENORRHOEA [None]
  - MENORRHAGIA [None]
